FAERS Safety Report 5445040-9 (Version None)
Quarter: 2007Q3

REPORT INFORMATION
  Report Type: 
  Country: None (occurrence: None)
  Receive Date: 20070906
  Receipt Date: 20070828
  Transmission Date: 20080115
  Serious: Yes (Other)
  Sender: FDA-Public Use
  Company Number: US-ELI_LILLY_AND_COMPANY-US200708006499

PATIENT
  Age: 16 Year
  Sex: Male

DRUGS (2)
  1. STRATTERA [Suspect]
     Indication: ATTENTION DEFICIT/HYPERACTIVITY DISORDER
     Dosage: 18 MG, 2/D
     Dates: start: 20070517
  2. ZOLOFT [Concomitant]

REACTIONS (4)
  - FULL BLOOD COUNT ABNORMAL [None]
  - LEUKAEMIA [None]
  - PLATELET COUNT DECREASED [None]
  - ROAD TRAFFIC ACCIDENT [None]
